FAERS Safety Report 6998060-7 (Version None)
Quarter: 2010Q3

REPORT INFORMATION
  Report Type: 
  Country: None (occurrence: None)
  Receive Date: 20100920
  Receipt Date: 20071008
  Transmission Date: 20110219
  Serious: No
  Sender: FDA-Public Use
  Company Number: US-ASTRAZENECA-2007UW01938

PATIENT
  Age: 17835 Day
  Sex: Female
  Weight: 149.7 kg

DRUGS (66)
  1. SEROQUEL [Suspect]
     Indication: ANXIETY
     Route: 048
     Dates: start: 20021031
  2. SEROQUEL [Suspect]
     Indication: PANIC ATTACK
     Route: 048
     Dates: start: 20021031
  3. SEROQUEL [Suspect]
     Indication: BIPOLAR DISORDER
     Route: 048
     Dates: start: 20021031
  4. SEROQUEL [Suspect]
     Dosage: 25-300 MG
     Route: 048
     Dates: start: 20031007
  5. SEROQUEL [Suspect]
     Dosage: 25-300 MG
     Route: 048
     Dates: start: 20031007
  6. SEROQUEL [Suspect]
     Dosage: 25-300 MG
     Route: 048
     Dates: start: 20031007
  7. SEROQUEL [Suspect]
     Route: 048
     Dates: start: 20031028
  8. SEROQUEL [Suspect]
     Route: 048
     Dates: start: 20031028
  9. SEROQUEL [Suspect]
     Route: 048
     Dates: start: 20031028
  10. SEROQUEL [Suspect]
     Dosage: 25 - 200 MG
     Route: 048
     Dates: start: 20031001
  11. SEROQUEL [Suspect]
     Dosage: 25 - 200 MG
     Route: 048
     Dates: start: 20031001
  12. SEROQUEL [Suspect]
     Dosage: 25 - 200 MG
     Route: 048
     Dates: start: 20031001
  13. SEROQUEL [Suspect]
     Route: 048
     Dates: start: 20031118
  14. SEROQUEL [Suspect]
     Route: 048
     Dates: start: 20031118
  15. SEROQUEL [Suspect]
     Route: 048
     Dates: start: 20031118
  16. SEROQUEL [Suspect]
     Route: 048
     Dates: start: 20040206
  17. SEROQUEL [Suspect]
     Route: 048
     Dates: start: 20040206
  18. SEROQUEL [Suspect]
     Route: 048
     Dates: start: 20040206
  19. SEROQUEL [Suspect]
     Route: 048
     Dates: start: 20040510
  20. SEROQUEL [Suspect]
     Route: 048
     Dates: start: 20040510
  21. SEROQUEL [Suspect]
     Route: 048
     Dates: start: 20040510
  22. SEROQUEL [Suspect]
     Route: 048
     Dates: start: 20040729
  23. SEROQUEL [Suspect]
     Route: 048
     Dates: start: 20040729
  24. SEROQUEL [Suspect]
     Route: 048
     Dates: start: 20040729
  25. SEROQUEL [Suspect]
     Route: 048
     Dates: start: 20040926
  26. SEROQUEL [Suspect]
     Route: 048
     Dates: start: 20040926
  27. SEROQUEL [Suspect]
     Route: 048
     Dates: start: 20040926
  28. SEROQUEL [Suspect]
     Route: 048
     Dates: start: 20050418
  29. SEROQUEL [Suspect]
     Route: 048
     Dates: start: 20050418
  30. SEROQUEL [Suspect]
     Route: 048
     Dates: start: 20050418
  31. SEROQUEL [Suspect]
     Route: 048
     Dates: start: 20051202
  32. SEROQUEL [Suspect]
     Route: 048
     Dates: start: 20051202
  33. SEROQUEL [Suspect]
     Route: 048
     Dates: start: 20051202
  34. SEROQUEL [Suspect]
     Route: 048
     Dates: start: 20051228
  35. SEROQUEL [Suspect]
     Route: 048
     Dates: start: 20051228
  36. SEROQUEL [Suspect]
     Route: 048
     Dates: start: 20051228
  37. SEROQUEL [Suspect]
     Route: 048
  38. SEROQUEL [Suspect]
     Route: 048
  39. SEROQUEL [Suspect]
     Route: 048
  40. LEXAPRO [Concomitant]
     Indication: DEPRESSION
     Dates: start: 20031007
  41. LEXAPRO [Concomitant]
     Dates: start: 20031028
  42. LEXAPRO [Concomitant]
     Dates: start: 20031118
  43. LEXAPRO [Concomitant]
     Dates: start: 20040614
  44. LEXAPRO [Concomitant]
     Dates: start: 20061130
  45. BUSPAR [Concomitant]
     Route: 048
     Dates: start: 20031118
  46. BUSPAR [Concomitant]
     Route: 048
     Dates: start: 20031118
  47. BUSPAR [Concomitant]
     Route: 048
     Dates: start: 20031028
  48. BUSPAR [Concomitant]
     Route: 048
     Dates: start: 20040903
  49. BUSPAR [Concomitant]
     Route: 048
     Dates: start: 20041013
  50. BUSPAR [Concomitant]
     Route: 048
     Dates: start: 20041013
  51. DEPAKOTE ER [Concomitant]
     Route: 048
     Dates: start: 20031007
  52. DEPAKOTE ER [Concomitant]
     Dates: start: 20031007
  53. DEPAKOTE [Concomitant]
     Dates: start: 20031112
  54. DEPAKOTE [Concomitant]
     Dates: start: 20031118
  55. DEPAKOTE [Concomitant]
     Dates: start: 20061130
  56. TRAZODONE HCL [Concomitant]
     Indication: INSOMNIA
     Dates: start: 20031007
  57. TRAZODONE HCL [Concomitant]
     Dates: start: 20060606
  58. ENALAPRIL [Concomitant]
     Dates: start: 20061130
  59. VESICARE [Concomitant]
  60. DYNACIRC CR [Concomitant]
  61. METFORMIN [Concomitant]
  62. PRILOSEC [Concomitant]
  63. MAXZIDE [Concomitant]
     Dosage: EVERY DAY
  64. FLONASE [Concomitant]
     Dosage: AS REQUIRED
  65. ALBUTEROL [Concomitant]
     Dosage: AS REQUIRED
  66. LOVASTATIN [Concomitant]

REACTIONS (12)
  - ARTHRALGIA [None]
  - BLOOD TRIGLYCERIDES INCREASED [None]
  - CANDIDIASIS [None]
  - CONSTIPATION [None]
  - GASTROOESOPHAGEAL REFLUX DISEASE [None]
  - HYPERLIPIDAEMIA [None]
  - MUSCULOSKELETAL PAIN [None]
  - NAUSEA [None]
  - RESPIRATORY DISORDER [None]
  - RHINITIS ALLERGIC [None]
  - TEMPOROMANDIBULAR JOINT SYNDROME [None]
  - TYPE 2 DIABETES MELLITUS [None]
